FAERS Safety Report 6081309-5 (Version None)
Quarter: 2009Q1

REPORT INFORMATION
  Report Type: 
  Country: None (occurrence: None)
  Receive Date: 20090210
  Receipt Date: 20090130
  Transmission Date: 20090719
  Serious: Yes (Other)
  Sender: FDA-Public Use
  Company Number: AEUSA200900017

PATIENT
  Age: 9 Month
  Sex: Male

DRUGS (3)
  1. IMMUNE GLOBULIN (HUMAN) [Suspect]
     Indication: COMBINED IMMUNODEFICIENCY
     Dosage: 600 MG/KG, QM, IV
     Route: 042
     Dates: start: 20081010, end: 20090121
  2. IMMUNE GLOBULIN (HUMAN) [Suspect]
  3. IMMUNE GLOBULIN (HUMAN) [Suspect]

REACTIONS (4)
  - ANTI-HBC IGG ANTIBODY POSITIVE [None]
  - HTLV-1 TEST POSITIVE [None]
  - HTLV-2 TEST POSITIVE [None]
  - TRANSMISSION OF AN INFECTIOUS AGENT VIA A MEDICINAL PRODUCT [None]
